FAERS Safety Report 6230397-1 (Version None)
Quarter: 2009Q2

REPORT INFORMATION
  Report Type: 
  Country: None (occurrence: None)
  Receive Date: 20090615
  Receipt Date: 20090429
  Transmission Date: 20091009
  Serious: No
  Sender: FDA-Public Use
  Company Number: PR-ABBOTT-09P-131-0570608-00

PATIENT
  Sex: Female

DRUGS (4)
  1. TRILIPIX [Suspect]
     Indication: HYPERTRIGLYCERIDAEMIA
     Route: 048
     Dates: start: 20090325, end: 20090409
  2. ARICEPT [Concomitant]
     Indication: DRUG USE FOR UNKNOWN INDICATION
     Route: 048
  3. EVISTA [Concomitant]
     Indication: OSTEOPOROSIS
     Route: 048
  4. DOLOGESIC [Concomitant]
     Indication: OSTEOARTHRITIS
     Route: 048

REACTIONS (3)
  - GAIT DISTURBANCE [None]
  - HYPERSENSITIVITY [None]
  - OEDEMA PERIPHERAL [None]
